FAERS Safety Report 9851691 (Version 2)
Quarter: 2014Q1

REPORT INFORMATION
  Report Type: Report from Study
  Country: US (occurrence: US)
  Receive Date: 20140129
  Receipt Date: 20140205
  Transmission Date: 20141002
  Serious: Yes (Other)
  Sender: FDA-Public Use
  Company Number: US-IPSEN BIOPHARMACEUTICALS, INC.-2014-0405

PATIENT
  Age: 60 Year
  Sex: Male
  Weight: 90.71 kg

DRUGS (3)
  1. SOMATULINE DEPOT INJECTION (90MG) [Suspect]
     Indication: BLOOD GROWTH HORMONE INCREASED
     Dosage: 90 MG
     Route: 058
     Dates: start: 20120713
  2. SOMATULINE DEPOT INJECTION (90MG) [Suspect]
     Indication: OFF LABEL USE
  3. GLYBURIDE [Suspect]
     Indication: DIABETES MELLITUS
     Dates: start: 201312

REACTIONS (1)
  - Stress fracture [Unknown]
